FAERS Safety Report 13851390 (Version 4)
Quarter: 2021Q3

REPORT INFORMATION
  Report Type: Spontaneous
  Country: CA (occurrence: CA)
  Receive Date: 20170809
  Receipt Date: 20210909
  Transmission Date: 20211014
  Serious: Yes (Death, Other)
  Sender: FDA-Public Use
  Company Number: CA-BRISTOL-MYERS SQUIBB COMPANY-BMS-2017-069840

PATIENT
  Age: 54 Year
  Sex: Male

DRUGS (22)
  1. SERTRALINE HYDROCHLORIDE. [Suspect]
     Active Substance: SERTRALINE HYDROCHLORIDE
     Indication: BIPOLAR DISORDER
     Dosage: 400 MILLIGRAM, BID
     Route: 065
  2. LAMIVUDINE. [Suspect]
     Active Substance: LAMIVUDINE
     Indication: HIV INFECTION
     Dosage: UNK
     Route: 005
  3. CLONAZEPAM. [Suspect]
     Active Substance: CLONAZEPAM
     Indication: BIPOLAR DISORDER
     Dosage: UNK
     Route: 048
  4. QUETIAPINE FUMARATE. [Suspect]
     Active Substance: QUETIAPINE FUMARATE
     Indication: BIPOLAR DISORDER
  5. ATAZANAVIR SULFATE. [Suspect]
     Active Substance: ATAZANAVIR SULFATE
     Indication: HIV INFECTION
     Dosage: UNK
     Route: 005
  6. SUSTIVA [Suspect]
     Active Substance: EFAVIRENZ
     Dosage: 400 MILLIGRAM
     Route: 048
  7. KALETRA [Suspect]
     Active Substance: LOPINAVIR\RITONAVIR
     Indication: HIV INFECTION
     Dosage: UNK
     Route: 048
  8. RALTEGRAVIR. [Suspect]
     Active Substance: RALTEGRAVIR
     Indication: PRODUCT USED FOR UNKNOWN INDICATION
     Dosage: 400 MILLIGRAM, BID
     Route: 048
  9. SERTRALINE HYDROCHLORIDE. [Suspect]
     Active Substance: SERTRALINE HYDROCHLORIDE
     Indication: HIV INFECTION
  10. ZOPICLONE [Suspect]
     Active Substance: ZOPICLONE
     Indication: BIPOLAR DISORDER
     Dosage: UNK
     Route: 048
  11. ATAZANAVIR SULFATE. [Suspect]
     Active Substance: ATAZANAVIR SULFATE
     Indication: BIPOLAR DISORDER
  12. SUSTIVA [Suspect]
     Active Substance: EFAVIRENZ
     Indication: PRODUCT USED FOR UNKNOWN INDICATION
     Dosage: 400 MG, BID
     Route: 048
  13. QUETIAPINE. [Suspect]
     Active Substance: QUETIAPINE
     Indication: BIPOLAR DISORDER
     Dosage: UNK
     Route: 048
  14. SERTRALINE [Suspect]
     Active Substance: SERTRALINE HYDROCHLORIDE
     Indication: BIPOLAR DISORDER
     Dosage: UNK
     Route: 065
  15. T?20 [Concomitant]
     Active Substance: ENFUVIRTIDE
     Indication: PRODUCT USED FOR UNKNOWN INDICATION
     Route: 065
  16. ENFUVIRTIDE. [Concomitant]
     Active Substance: ENFUVIRTIDE
     Indication: HIV INFECTION
     Dosage: UNK
     Route: 065
  17. BUPROPION. [Suspect]
     Active Substance: BUPROPION
     Indication: BIPOLAR DISORDER
     Dosage: UNK
     Route: 048
  18. BUPROPION HYDROCHLORIDE. [Suspect]
     Active Substance: BUPROPION HYDROCHLORIDE
     Indication: BIPOLAR DISORDER
     Dosage: UNK
     Route: 048
  19. QUETIAPINE FUMARATE. [Suspect]
     Active Substance: QUETIAPINE FUMARATE
     Indication: HIV INFECTION
     Dosage: UNK
     Route: 048
  20. VALPROIC ACID. [Suspect]
     Active Substance: VALPROIC ACID
     Indication: BIPOLAR DISORDER
     Dosage: UNK
     Route: 065
  21. ATAZANAVIR SULFATE. [Suspect]
     Active Substance: ATAZANAVIR SULFATE
     Indication: HIV INFECTION
     Dosage: UNK
     Route: 048
  22. RALTEGRAVIR POTASSIUM [Suspect]
     Active Substance: RALTEGRAVIR POTASSIUM
     Indication: HIV INFECTION
     Dosage: 400 MG, BID
     Route: 048

REACTIONS (2)
  - Drug interaction [Fatal]
  - Depression [Fatal]
